FAERS Safety Report 8541657-3 (Version None)
Quarter: 2012Q3

REPORT INFORMATION
  Report Type: 
  Country: None (occurrence: None)
  Receive Date: 20120726
  Receipt Date: 20120718
  Transmission Date: 20120928
  Serious: Yes (Hospitalization, Disabling)
  Sender: FDA-Public Use
  Company Number: FR-GLAXOSMITHKLINE-B0696326A

PATIENT
  Sex: Female

DRUGS (20)
  1. CRESTOR [Concomitant]
     Indication: HYPERCHOLESTEROLAEMIA
     Dosage: 5MG PER DAY
     Route: 048
     Dates: start: 20100517
  2. CALCIUM CARBONATE [Concomitant]
     Route: 048
     Dates: start: 20100414
  3. VALSARTAN  AND HYDROCHLOROTHIAZIDE [Concomitant]
     Dosage: 80MG PER DAY
     Route: 048
     Dates: start: 20080401
  4. TRAMADOL HCL [Concomitant]
     Route: 048
  5. DEXERYL (FRANCE) [Concomitant]
     Route: 061
  6. GAVISCON [Concomitant]
     Dosage: 2SAC PER DAY
     Route: 048
     Dates: start: 20080529
  7. OMEPRAZOLE [Concomitant]
     Dosage: 20MG PER DAY
     Route: 048
     Dates: start: 20100113
  8. LEVOTHYROXINE SODIUM [Concomitant]
     Dosage: 112.5MCG PER DAY
     Route: 048
  9. BIAFINE [Concomitant]
     Route: 061
  10. CELECTOL [Concomitant]
     Dosage: 1TAB PER DAY
     Route: 048
     Dates: start: 20080401
  11. PROZAC [Concomitant]
     Dosage: 20MG PER DAY
     Route: 048
     Dates: start: 20091022
  12. NEXIUM [Concomitant]
     Dosage: 20MG PER DAY
     Route: 048
     Dates: start: 20100512
  13. AVANDAMET [Suspect]
     Indication: TYPE 2 DIABETES MELLITUS
     Route: 048
     Dates: end: 20100616
  14. FERROUS SULFATE TAB [Concomitant]
     Route: 048
  15. ACETAMINOPHEN [Concomitant]
  16. JANUVIA [Concomitant]
     Indication: DIABETES MELLITUS
     Dosage: 1TAB PER DAY
     Route: 048
     Dates: start: 20100517
  17. GLUCOPHAGE [Concomitant]
     Indication: TYPE 2 DIABETES MELLITUS
     Dosage: 1000MG PER DAY
     Route: 048
     Dates: start: 20040301
  18. ATARAX [Concomitant]
     Dosage: 25MG AS REQUIRED
     Route: 048
  19. LEXOMIL [Concomitant]
     Route: 048
  20. ANTALGIC [Concomitant]
     Dates: start: 20080401

REACTIONS (8)
  - ATRIAL FIBRILLATION [None]
  - ANGINA PECTORIS [None]
  - MALAISE [None]
  - CYANOSIS [None]
  - TREMOR [None]
  - ASTHENIA [None]
  - CHEST PAIN [None]
  - TACHYCARDIA PAROXYSMAL [None]
